FAERS Safety Report 6410467-5 (Version None)
Quarter: 2009Q4

REPORT INFORMATION
  Report Type: 
  Country: None (occurrence: None)
  Receive Date: 20091022
  Receipt Date: 20091011
  Transmission Date: 20100525
  Serious: Yes (Hospitalization, Disabling, Other)
  Sender: FDA-Public Use
  Company Number: US-JNJFOC-20091004492

PATIENT
  Sex: Female
  Weight: 68.04 kg

DRUGS (1)
  1. REMICADE [Suspect]
     Indication: CROHN'S DISEASE
     Dosage: 3RD INFUSION IN 2003
     Route: 042

REACTIONS (5)
  - ANXIETY [None]
  - DYSPNOEA [None]
  - ORGAN FAILURE [None]
  - PARALYSIS [None]
  - RENAL FAILURE [None]
